FAERS Safety Report 4557859-7 (Version None)
Quarter: 2005Q1

REPORT INFORMATION
  Report Type: 
  Country: None (occurrence: None)
  Receive Date: 20050121
  Receipt Date: 20050111
  Transmission Date: 20050727
  Serious: Yes (Other)
  Sender: FDA-Public Use
  Company Number: AU-NOVOPROD-241591

PATIENT
  Age: 70 Year
  Sex: Female

DRUGS (2)
  1. NOVORAPID [Suspect]
     Indication: INSULIN-REQUIRING TYPE II DIABETES MELLITUS
  2. PROTAPHANE [Suspect]
     Indication: INSULIN-REQUIRING TYPE II DIABETES MELLITUS

REACTIONS (2)
  - PROCEDURAL COMPLICATION [None]
  - TRIPLE VESSEL BYPASS GRAFT [None]
